FAERS Safety Report 17147226 (Version 4)
Quarter: 2025Q2

REPORT INFORMATION
  Report Type: Spontaneous
  Country: BG (occurrence: BG)
  Receive Date: 20191212
  Receipt Date: 20250613
  Transmission Date: 20250716
  Serious: Yes (Hospitalization, Other)
  Sender: MYLAN
  Company Number: BG-NOVPHSZ-PHHY2019BG171876

PATIENT
  Age: 60 Year
  Sex: Female

DRUGS (17)
  1. AMLODIPINE [Suspect]
     Active Substance: AMLODIPINE BESYLATE
     Indication: Cardiotoxicity
     Dosage: 2 DOSAGE FORM, QD (1 DF, BID (2X1 TABLET)
     Dates: start: 201903
  2. BISOPROLOL [Suspect]
     Active Substance: BISOPROLOL
     Indication: Cardiotoxicity
     Dosage: 2.5 MG, QD
     Dates: start: 201903
  3. BISOPROLOL [Suspect]
     Active Substance: BISOPROLOL
     Indication: Cardiac failure
  4. MYCOPHENOLATE MOFETIL [Suspect]
     Active Substance: MYCOPHENOLATE MOFETIL
     Indication: Myeloid leukaemia
     Dosage: 2 DF, TID (3X2TABLETS)
  5. MYCOPHENOLATE MOFETIL [Suspect]
     Active Substance: MYCOPHENOLATE MOFETIL
     Dosage: 500 MG, TID
  6. RAMIPRIL [Suspect]
     Active Substance: RAMIPRIL
     Indication: Cardiotoxicity
     Dosage: 5 MG, BID
  7. RAMIPRIL [Suspect]
     Active Substance: RAMIPRIL
     Indication: Cardiac failure
     Dosage: 1 DF, BID (2X1TABLET)
     Dates: start: 201903
  8. CYCLOPHOSPHAMIDE [Suspect]
     Active Substance: CYCLOPHOSPHAMIDE
     Indication: Myeloid leukaemia
  9. SPIRONOLACTONE [Concomitant]
     Active Substance: SPIRONOLACTONE
     Indication: Cardiotoxicity
     Dosage: 2 DOSAGE FORM, QD (1 DF, BID (2X1 TABLET)
     Dates: start: 201903
  10. URSODIOL [Concomitant]
     Active Substance: URSODIOL
     Indication: Cardiotoxicity
     Dosage: 1 DF, BID (2X1 TABLET)
     Dates: start: 201903
  11. URSODIOL [Concomitant]
     Active Substance: URSODIOL
     Dosage: 250 MG, BID
     Dates: start: 201903
  12. PANTOPRAZOLE [Concomitant]
     Active Substance: PANTOPRAZOLE
     Indication: Cardiotoxicity
     Dosage: 1 DF, BID (2X1TABLET)
     Dates: start: 201903
  13. PANTOPRAZOLE [Concomitant]
     Active Substance: PANTOPRAZOLE
     Dosage: 20 MG, BID
  14. TRIMETAZIDINE [Concomitant]
     Active Substance: TRIMETAZIDINE
     Indication: Cardiotoxicity
     Dosage: 2 DOSAGE FORM, QD (1 DF, BID (2X1 TABLET)
     Dates: start: 201903
  15. ACYCLOVIR [Concomitant]
     Active Substance: ACYCLOVIR
     Indication: Cardiotoxicity
     Dosage: 1 DF, TID (3X1TABLET)
     Dates: start: 201903
  16. ACYCLOVIR [Concomitant]
     Active Substance: ACYCLOVIR
     Dosage: 400 MG, TID (1200 MG, QD)
  17. METHYLPREDNISOLONE [Concomitant]
     Active Substance: METHYLPREDNISOLONE
     Indication: Cardiotoxicity
     Dosage: 16 MILLIGRAM, QD
     Dates: start: 201903

REACTIONS (15)
  - Heart failure with reduced ejection fraction [Recovering/Resolving]
  - Mitral valve incompetence [Recovering/Resolving]
  - Pulmonary hypertension [Recovering/Resolving]
  - Rales [Recovering/Resolving]
  - General physical health deterioration [Recovering/Resolving]
  - Peripheral swelling [Recovering/Resolving]
  - Joint swelling [Recovering/Resolving]
  - Cardiotoxicity [Recovering/Resolving]
  - Tricuspid valve incompetence [Recovered/Resolved]
  - Dyspnoea [Recovered/Resolved]
  - Fatigue [Recovering/Resolving]
  - Off label use [Unknown]
  - Drug ineffective [Unknown]
  - Intentional product misuse [Unknown]
  - Cardiac failure [Recovering/Resolving]

NARRATIVE: CASE EVENT DATE: 20190301
